FAERS Safety Report 8178395-5 (Version None)
Quarter: 2012Q1

REPORT INFORMATION
  Report Type: 
  Country: None (occurrence: None)
  Receive Date: 20120301
  Receipt Date: 20120224
  Transmission Date: 20120608
  Serious: Yes (Hospitalization)
  Sender: FDA-Public Use
  Company Number: US-B.I. PHARMACEUTICALS,INC./RIDGEFIELD-2011-BP-22603BP

PATIENT
  Age: 84 Year
  Sex: Female

DRUGS (18)
  1. LOVAZA [Concomitant]
  2. FISH OIL [Concomitant]
     Indication: SUPPLEMENTATION THERAPY
  3. POTASSIUM CHLORIDE [Concomitant]
     Indication: SUPPLEMENTATION THERAPY
  4. NORVASC [Concomitant]
     Indication: HYPERTENSION
  5. PRASTERONE [Concomitant]
     Indication: VITAMIN SUPPLEMENTATION
  6. COREG [Concomitant]
     Indication: HYPERTENSION
  7. CAL VIT D [Concomitant]
     Indication: SUPPLEMENTATION THERAPY
  8. DIGOXIN [Concomitant]
     Indication: ARRHYTHMIA
  9. MIRAPEX [Concomitant]
     Indication: RESTLESS LEGS SYNDROME
  10. VITAMIN B-12 [Concomitant]
     Indication: SUPPLEMENTATION THERAPY
  11. KELP [Concomitant]
     Indication: ELECTROLYTE SUBSTITUTION THERAPY
  12. ASPIRIN [Concomitant]
  13. MULTI-VITAMINS [Concomitant]
     Indication: PROPHYLAXIS
  14. VEGETABLE LAXATIVE [Concomitant]
     Indication: CONSTIPATION
  15. LASIX [Concomitant]
     Indication: SWELLING
  16. PRADAXA [Suspect]
     Indication: ATRIAL FIBRILLATION
     Dosage: 300 MG
     Route: 048
     Dates: start: 20110920, end: 20111201
  17. CRESTOR [Concomitant]
     Indication: BLOOD CHOLESTEROL INCREASED
  18. KLONOPIN [Concomitant]
     Indication: SLEEP DISORDER

REACTIONS (4)
  - FATIGUE [None]
  - DIARRHOEA [None]
  - ABDOMINAL DISCOMFORT [None]
  - CLOSTRIDIAL INFECTION [None]
